FAERS Safety Report 9922615 (Version 2)
Quarter: 2014Q1

REPORT INFORMATION
  Report Type: Spontaneous
  Country: US (occurrence: US)
  Receive Date: 20140225
  Receipt Date: 20140225
  Transmission Date: 20141002
  Serious: No
  Sender: FDA-Public Use
  Company Number: US-MYLANLABS-2013S1004905

PATIENT
  Age: 38 Year
  Sex: Male
  Weight: 90.72 kg

DRUGS (2)
  1. DIVALPROEX SODIUM EXTENDED-RELEASE TABLETS [Suspect]
     Indication: MOOD DISORDER DUE TO A GENERAL MEDICAL CONDITION
     Route: 048
     Dates: start: 20130228, end: 20130228
  2. DIVALPROEX SODIUM EXTENDED-RELEASE TABLETS [Suspect]
     Indication: BIPOLAR DISORDER
     Route: 048
     Dates: start: 20130228, end: 20130228

REACTIONS (2)
  - Ocular hyperaemia [Recovered/Resolved]
  - Vision blurred [Recovered/Resolved]
